FAERS Safety Report 7006961-9 (Version None)
Quarter: 2010Q3

REPORT INFORMATION
  Report Type: 
  Country: None (occurrence: None)
  Receive Date: 20100922
  Receipt Date: 20100910
  Transmission Date: 20110219
  Serious: Yes (Hospitalization)
  Sender: FDA-Public Use
  Company Number: FR-JNJFOC-20100903984

PATIENT
  Age: 70 Year
  Sex: Female

DRUGS (1)
  1. CAELYX [Suspect]
     Indication: BREAST CANCER
     Route: 042

REACTIONS (4)
  - DERMATITIS BULLOUS [None]
  - ERYTHEMA [None]
  - GENERALISED ERYTHEMA [None]
  - PALMAR-PLANTAR ERYTHRODYSAESTHESIA SYNDROME [None]
